FAERS Safety Report 10892615 (Version 5)
Quarter: 2015Q3

REPORT INFORMATION
  Report Type: Report from Study
  Country: IT (occurrence: IT)
  Receive Date: 20150306
  Receipt Date: 20150703
  Transmission Date: 20151125
  Serious: Yes (Hospitalization, Other)
  Sender: FDA-Public Use
  Company Number: IT-009507513-1502ITA009731

PATIENT
  Age: 68 Year
  Sex: Male

DRUGS (3)
  1. REBETOL [Suspect]
     Active Substance: RIBAVIRIN
     Indication: HEPATITIS C
     Dosage: 1000 MG, QD
     Route: 048
     Dates: start: 20141230, end: 20150224
  2. NEORECORMON [Concomitant]
     Active Substance: ERYTHROPOIETIN
     Indication: ANAEMIA
     Dosage: CYCLIC, TOTAL DAILY DOSE 30000IU
     Route: 058
     Dates: start: 20141209, end: 20150211
  3. SOVALDI [Suspect]
     Active Substance: SOFOSBUVIR
     Indication: HEPATITIS C
     Dosage: 400 MG, QD
     Route: 048
     Dates: start: 20140909, end: 20150224

REACTIONS (5)
  - Portal vein thrombosis [Unknown]
  - Small intestinal haemorrhage [Recovered/Resolved]
  - Ascites [Unknown]
  - Hepatic cirrhosis [Recovering/Resolving]
  - Portal hypertension [Recovering/Resolving]

NARRATIVE: CASE EVENT DATE: 20150218
